FAERS Safety Report 10144170 (Version 1)
Quarter: 2014Q2

REPORT INFORMATION
  Report Type: Spontaneous
  Country: US (occurrence: US)
  Receive Date: 20140430
  Receipt Date: 20140430
  Transmission Date: 20141212
  Serious: Yes (Death)
  Sender: FDA-Public Use
  Company Number: US-ACTELION-A-US2014-97857

PATIENT
  Age: 61 Year
  Sex: Female

DRUGS (2)
  1. VELETRI [Suspect]
     Indication: BLOOD PRESSURE MANAGEMENT
     Dosage: UNK
     Route: 042
     Dates: end: 201312
  2. XIFAXAN [Suspect]
     Route: 048

REACTIONS (2)
  - Death [Fatal]
  - Malaise [Unknown]
